FAERS Safety Report 6779053-1 (Version None)
Quarter: 2010Q2

REPORT INFORMATION
  Report Type: 
  Country: None (occurrence: None)
  Receive Date: 20100618
  Receipt Date: 20100609
  Transmission Date: 20101027
  Serious: Yes (Disabling, Other)
  Sender: FDA-Public Use
  Company Number: GB-PFIZER INC-2010054743

PATIENT
  Age: 84 Year
  Sex: Female
  Weight: 44 kg

DRUGS (12)
  1. ATORVASTATIN CALCIUM [Suspect]
     Dosage: 80 MG, 1X/DAY AT NIGHT
     Route: 048
     Dates: start: 20100218, end: 20100322
  2. ATORVASTATIN CALCIUM [Suspect]
     Dosage: 40 MG, UNK
  3. ACETYLSALICYLIC ACID [Concomitant]
     Dosage: UNK
  4. ALFACALCIDOL [Concomitant]
     Indication: NEPHROPATHY
     Dosage: 250 UG, UNK
     Route: 048
  5. BETAHISTINE [Concomitant]
     Indication: DIZZINESS
     Dosage: 8 MG, 3X/DAY
     Route: 048
  6. BISOPROLOL [Concomitant]
     Indication: MYOCARDIAL INFARCTION
     Dosage: 5 MG, 1X/DAY
     Route: 048
  7. CLOPIDOGREL [Concomitant]
     Indication: MYOCARDIAL INFARCTION
     Dosage: 75 MG, UNK
     Route: 048
  8. FRUSEMIDE [Concomitant]
     Indication: LEFT VENTRICULAR FAILURE
     Dosage: 40 MG, 1X/DAY
     Route: 048
  9. PERINDOPRIL [Concomitant]
     Indication: LEFT VENTRICULAR FAILURE
     Dosage: 2 MG, ALTERNATE DAY
  10. SALBUTAMOL [Concomitant]
     Indication: CHRONIC OBSTRUCTIVE PULMONARY DISEASE
     Dosage: 100 MG, AS NEEDED
  11. TEMAZEPAM [Concomitant]
     Indication: INSOMNIA
     Dosage: 10 MG, 1X/DAY AT NIGHT
  12. WARFARIN [Concomitant]
     Indication: DEEP VEIN THROMBOSIS

REACTIONS (4)
  - BLOOD CREATINE PHOSPHOKINASE INCREASED [None]
  - FATIGUE [None]
  - MYOCARDIAL INFARCTION [None]
  - RHABDOMYOLYSIS [None]
